FAERS Safety Report 22295212 (Version 2)
Quarter: 2023Q2

REPORT INFORMATION
  Report Type: Spontaneous
  Country: US (occurrence: None)
  Receive Date: 20230508
  Receipt Date: 20230612
  Transmission Date: 20230722
  Serious: Yes (Other)
  Sender: FDA-Public Use
  Company Number: US-FARMAPROD-202304-1035

PATIENT
  Age: 70 Year
  Sex: Female

DRUGS (16)
  1. OXERVATE [Suspect]
     Active Substance: CENEGERMIN-BKBJ
     Indication: Neurotrophic keratopathy
     Route: 047
     Dates: start: 20230407
  2. PREDNISOLONE [Concomitant]
     Active Substance: PREDNISOLONE
  3. TYLENOL [Concomitant]
     Active Substance: ACETAMINOPHEN
  4. IBUPROFEN [Concomitant]
     Active Substance: IBUPROFEN
  5. FLAXSEED-FISH-BORAGE OIL [Concomitant]
  6. CRANBERRY [Concomitant]
     Active Substance: CRANBERRY
  7. GARLIC [Concomitant]
     Active Substance: GARLIC
  8. MAGNESIUM [Concomitant]
     Active Substance: MAGNESIUM
  9. VITAMIN D2 [Concomitant]
     Active Substance: ERGOCALCIFEROL
  10. VALACYCLOVIR [Concomitant]
     Active Substance: VALACYCLOVIR HYDROCHLORIDE
  11. DOXYCYCLINE HYCLATE [Concomitant]
     Active Substance: DOXYCYCLINE HYCLATE
  12. LISINOPRIL [Concomitant]
     Active Substance: LISINOPRIL
  13. OFLOXACIN [Concomitant]
     Active Substance: OFLOXACIN
  14. SODIUM CHLORIDE [Concomitant]
     Active Substance: SODIUM CHLORIDE
  15. VENTOLIN HFA [Concomitant]
     Active Substance: ALBUTEROL SULFATE
     Dosage: AEROSOL WITH ADAPTER
  16. PREDNISOLONE ACETATE [Concomitant]
     Active Substance: PREDNISOLONE ACETATE

REACTIONS (10)
  - Eye infection fungal [Unknown]
  - Surgery [Unknown]
  - Intentional product misuse [Unknown]
  - Headache [Recovering/Resolving]
  - Neuralgia [Unknown]
  - Herpes zoster [Recovering/Resolving]
  - Periorbital swelling [Recovering/Resolving]
  - Eye pain [Recovering/Resolving]
  - Ocular hyperaemia [Recovering/Resolving]
  - Eye irritation [Recovering/Resolving]

NARRATIVE: CASE EVENT DATE: 20230423
